FAERS Safety Report 13792375 (Version 5)
Quarter: 2018Q1

REPORT INFORMATION
  Report Type: Report from Study
  Country: US (occurrence: US)
  Receive Date: 20170726
  Receipt Date: 20180122
  Transmission Date: 20180508
  Serious: Yes (Other)
  Sender: FDA-Public Use
  Company Number: US-ALEXION PHARMACEUTICALS INC.-A201708292

PATIENT
  Sex: Female

DRUGS (1)
  1. STRENSIQ [Suspect]
     Active Substance: ASFOTASE ALFA
     Indication: PRODUCT USED FOR UNKNOWN INDICATION
     Route: 058

REACTIONS (9)
  - Tooth loss [Unknown]
  - Knee deformity [Unknown]
  - Pain [Unknown]
  - Blood alkaline phosphatase increased [Unknown]
  - Device dislocation [Unknown]
  - Fall [Unknown]
  - Foot fracture [Unknown]
  - Dental alveolar anomaly [Unknown]
  - Pain in extremity [Unknown]
